FAERS Safety Report 7070207-6 (Version None)
Quarter: 2010Q4

REPORT INFORMATION
  Report Type: 
  Country: None (occurrence: None)
  Receive Date: 20101028
  Receipt Date: 20100916
  Transmission Date: 20110411
  Serious: No
  Sender: FDA-Public Use
  Company Number: US-WYE-H17593510

PATIENT
  Age: 69 Year
  Sex: Female
  Weight: 79.45 kg

DRUGS (6)
  1. ADVIL [Suspect]
     Indication: BACK PAIN
     Dosage: 2-3 GEL CAPS
     Route: 048
     Dates: start: 20090601, end: 20090601
  2. ADVIL [Suspect]
     Indication: PAIN IN EXTREMITY
  3. ADVIL [Suspect]
     Indication: ARTHRALGIA
  4. CALCIUM [Concomitant]
  5. POTASSIUM CHLORIDE [Concomitant]
  6. MULTI-VITAMINS [Concomitant]

REACTIONS (1)
  - ALOPECIA [None]
